FAERS Safety Report 16181808 (Version 3)
Quarter: 2019Q3

REPORT INFORMATION
  Report Type: Report from Study
  Country: None (occurrence: US)
  Receive Date: 20190411
  Receipt Date: 20190821
  Transmission Date: 20191004
  Serious: Yes (Other)
  Sender: FDA-Public Use
  Company Number: US-ABBVIE-19K-163-2737362-00

PATIENT
  Age: 50 Year
  Sex: Female

DRUGS (4)
  1. CIPRO [Concomitant]
     Active Substance: CIPROFLOXACIN HYDROCHLORIDE
     Indication: PRODUCT USED FOR UNKNOWN INDICATION
  2. FLAGYL [Concomitant]
     Active Substance: METRONIDAZOLE\METRONIDAZOLE HYDROCHLORIDE
     Indication: PRODUCT USED FOR UNKNOWN INDICATION
  3. HUMIRA [Suspect]
     Active Substance: ADALIMUMAB
     Indication: CROHN^S DISEASE
     Route: 058
     Dates: start: 20181009, end: 201902
  4. TYLENOL [Suspect]
     Active Substance: ACETAMINOPHEN
     Indication: PRODUCT USED FOR UNKNOWN INDICATION
     Route: 065

REACTIONS (10)
  - Drug ineffective [Not Recovered/Not Resolved]
  - Systemic lupus erythematosus rash [Recovering/Resolving]
  - Overdose [Not Recovered/Not Resolved]
  - Stent removal [Unknown]
  - Dyspnoea [Not Recovered/Not Resolved]
  - Fistula [Recovering/Resolving]
  - Crohn^s disease [Not Recovered/Not Resolved]
  - Stent placement [Unknown]
  - Hepatic enzyme increased [Unknown]
  - Procedural pain [Unknown]

NARRATIVE: CASE EVENT DATE: 2019
